FAERS Safety Report 5481095-3 (Version None)
Quarter: 2007Q4

REPORT INFORMATION
  Report Type: 
  Country: None (occurrence: None)
  Receive Date: 20071003
  Receipt Date: 20070926
  Transmission Date: 20080405
  Serious: Yes (Hospitalization)
  Sender: FDA-Public Use
  Company Number: LTI2007A00274

PATIENT
  Age: 80 Year
  Sex: Male

DRUGS (1)
  1. COMPETACT(PIOGLITAZONE HYDROCHLORIDE, METFORMIN HYDROCHLORIDE [Suspect]
     Indication: TYPE 2 DIABETES MELLITUS
     Dosage: (15 MG, D) ORAL
     Route: 048
     Dates: start: 20070101, end: 20070101

REACTIONS (3)
  - CARDIAC FAILURE [None]
  - DIALYSIS [None]
  - RENAL FAILURE [None]
